FAERS Safety Report 9887912 (Version 1)
Quarter: 2014Q1

REPORT INFORMATION
  Report Type: Report from Study
  Country: US (occurrence: US)
  Receive Date: 20140211
  Receipt Date: 20140211
  Transmission Date: 20141002
  Serious: Yes (Other)
  Sender: FDA-Public Use
  Company Number: US-ASTELLAS-2014US001359

PATIENT
  Sex: Female

DRUGS (2)
  1. ERLOTINIB TABLET [Suspect]
     Indication: NON-SMALL CELL LUNG CANCER
     Dosage: 150 MG, UID/QD
     Route: 048
     Dates: start: 201210, end: 201312
  2. ERLOTINIB TABLET [Suspect]
     Dosage: 100 MG, UID/QD
     Route: 048
     Dates: start: 201312

REACTIONS (14)
  - Alopecia [Unknown]
  - Weight decreased [Unknown]
  - Rash [Recovering/Resolving]
  - Diarrhoea [Unknown]
  - Abdominal discomfort [Unknown]
  - Malaise [Unknown]
  - Growth of eyelashes [Unknown]
  - Skin exfoliation [Unknown]
  - Nail growth abnormal [Unknown]
  - Onychoclasis [Unknown]
  - Hair growth abnormal [Unknown]
  - Nausea [Unknown]
  - Vomiting [Unknown]
  - Dry skin [Unknown]
